FAERS Safety Report 8274997-6 (Version None)
Quarter: 2012Q2

REPORT INFORMATION
  Report Type: 
  Country: None (occurrence: None)
  Receive Date: 20120411
  Receipt Date: 20120405
  Transmission Date: 20120825
  Serious: Yes (Other)
  Sender: FDA-Public Use
  Company Number: AU-AMGEN-AUSSP2012017317

PATIENT
  Age: 84 Year
  Sex: Male

DRUGS (2)
  1. ARANESP [Suspect]
     Indication: PRODUCT USED FOR UNKNOWN INDICATION
     Dosage: 80 MUG, UNK
     Dates: start: 20120314
  2. IRON [Concomitant]

REACTIONS (6)
  - HEADACHE [None]
  - TREMOR [None]
  - FEELING COLD [None]
  - BLOOD PRESSURE SYSTOLIC INCREASED [None]
  - ANXIETY [None]
  - FEELING HOT [None]
